FAERS Safety Report 12206807 (Version 1)
Quarter: 2016Q1

REPORT INFORMATION
  Report Type: Spontaneous
  Country: US (occurrence: None)
  Receive Date: 20160323
  Receipt Date: 20160323
  Transmission Date: 20160526
  Serious: No
  Sender: FDA-Public Use
  Company Number: None

PATIENT
  Age: 72 Year
  Sex: Female

DRUGS (1)
  1. CAPECITABINE 500MG TEVA [Suspect]
     Active Substance: CAPECITABINE
     Indication: BREAST CANCER
     Dosage: 500MG 3 TABS BID X14 DAYS THEN 7 DAYS OFF PO
     Route: 048
     Dates: start: 20151024

REACTIONS (2)
  - Drug dose omission [None]
  - Skin fissures [None]

NARRATIVE: CASE EVENT DATE: 2016
